FAERS Safety Report 8582633-4 (Version None)
Quarter: 2012Q3

REPORT INFORMATION
  Report Type: 
  Country: None (occurrence: None)
  Receive Date: 20120809
  Receipt Date: 20120729
  Transmission Date: 20120928
  Serious: Yes (Other)
  Sender: FDA-Public Use
  Company Number: US-PERRIGO-12US006612

PATIENT
  Sex: Male
  Weight: 78.005 kg

DRUGS (1)
  1. IBUPROFEN [Suspect]
     Indication: EAR PAIN
     Dosage: 400 MG, SINGLE
     Route: 048
     Dates: start: 20120729, end: 20120729

REACTIONS (9)
  - LIP SWELLING [None]
  - DYSPNOEA [None]
  - WHEEZING [None]
  - OEDEMA PERIPHERAL [None]
  - SWELLING FACE [None]
  - URTICARIA [None]
  - THROAT TIGHTNESS [None]
  - ANAPHYLACTIC REACTION [None]
  - SWOLLEN TONGUE [None]
